FAERS Safety Report 8320940-0 (Version None)
Quarter: 2012Q2

REPORT INFORMATION
  Report Type: 
  Country: None (occurrence: None)
  Receive Date: 20120430
  Receipt Date: 20120425
  Transmission Date: 20120825
  Serious: Yes (Congenital Anomaly, Other)
  Sender: FDA-Public Use
  Company Number: GXKR2012DE001571

PATIENT

DRUGS (2)
  1. TRIMIPRAMINE MALEATE [Suspect]
     Dosage: MATERNAL DOSE: 75 [MG/D ]
     Route: 064
     Dates: start: 20091217, end: 20101005
  2. SERTRALINE HYDROCHLORIDE [Suspect]
     Dosage: MATERNAL DOSE: 75 [MG/D ]
     Route: 064
     Dates: start: 20091217, end: 20101005

REACTIONS (4)
  - ATRIAL SEPTAL DEFECT [None]
  - CONGENITAL TRICUSPID VALVE INCOMPETENCE [None]
  - FOETAL EXPOSURE DURING PREGNANCY [None]
  - NEONATAL RESPIRATORY DISTRESS SYNDROME [None]
